FAERS Safety Report 15742319 (Version 1)
Quarter: 2018Q4

REPORT INFORMATION
  Report Type: Spontaneous
  Country: GB (occurrence: GB)
  Receive Date: 20181219
  Receipt Date: 20181219
  Transmission Date: 20190205
  Serious: Yes (Other)
  Sender: FDA-Public Use
  Company Number: GB-PFIZER INC-456575

PATIENT
  Age: 60 Year
  Sex: Male

DRUGS (19)
  1. ADCAL D3 [Concomitant]
     Active Substance: CALCIUM CARBONATE\CHOLECALCIFEROL
     Dosage: 1.5 G, DAILY
     Route: 048
     Dates: start: 20070401
  2. ALLOPURINOL. [Concomitant]
     Active Substance: ALLOPURINOL
     Indication: HYPERURICAEMIA
     Dosage: 300 MG, DAILY
     Route: 048
     Dates: start: 20070401
  3. DEXAMETHASONE. [Concomitant]
     Active Substance: DEXAMETHASONE
     Dosage: 40 MG, DAILY
     Route: 048
     Dates: start: 20070401
  4. EZETIMIBE. [Concomitant]
     Active Substance: EZETIMIBE
     Indication: HYPERCHOLESTEROLAEMIA
     Dosage: 10 MG, DAILY
     Route: 048
     Dates: start: 20070401
  5. FRUSEMIDE /00032601/ [Concomitant]
     Active Substance: FUROSEMIDE
     Dosage: 40 MG, DAILY
     Route: 048
     Dates: start: 20070801
  6. GRANISETRON [Concomitant]
     Active Substance: GRANISETRON
     Indication: VOMITING
     Dosage: 2 MG, DAILY
     Route: 048
     Dates: start: 20070501
  7. METOCLOPRAMIDE. [Concomitant]
     Active Substance: METOCLOPRAMIDE
     Dosage: UNK, 10-20MG AS NEEDED
     Route: 048
     Dates: start: 20070501
  8. MORPHINE [Concomitant]
     Active Substance: MORPHINE
     Indication: PAIN
     Dosage: 60 MG, DAILY
     Route: 048
     Dates: start: 20070401
  9. MOVICOL [Concomitant]
     Active Substance: POLYETHYLENE GLYCOL 3350\POTASSIUM CHLORIDE\SODIUM BICARBONATE\SODIUM CHLORIDE
     Indication: CONSTIPATION
     Dosage: UNK
     Route: 048
     Dates: start: 20070401
  10. ACICLOVIR [Concomitant]
     Active Substance: ACYCLOVIR
     Dosage: 1.2 G, DAILY
     Route: 048
     Dates: start: 20070501
  11. OMEPRAZOLE. [Concomitant]
     Active Substance: OMEPRAZOLE
     Dosage: 20 MG, DAILY
     Route: 048
     Dates: start: 20070401
  12. WARFARIN [Concomitant]
     Active Substance: WARFARIN
     Indication: ATRIAL FIBRILLATION
     Dosage: UNK
     Route: 048
     Dates: start: 20070601
  13. PAMIDRONATE DISODIUM. [Suspect]
     Active Substance: PAMIDRONATE DISODIUM
     Indication: PLASMA CELL MYELOMA
     Dosage: 90 MG, UNK
     Route: 042
     Dates: start: 20070509, end: 20070625
  14. ALENDRONIC ACID [Concomitant]
     Active Substance: ALENDRONIC ACID
     Dosage: 10 MG, DAILY
     Route: 048
     Dates: start: 20070401
  15. FLUCONAZOLE. [Concomitant]
     Active Substance: FLUCONAZOLE
     Dosage: 50 MG, DAILY
     Route: 048
  16. THALIDOMIDE [Concomitant]
     Active Substance: THALIDOMIDE
     Dosage: UNK, DAILY (100-200MG/DAY)
     Route: 048
     Dates: start: 20070801
  17. COTRIMOXAZOLE [Concomitant]
     Active Substance: SULFAMETHOXAZOLE\TRIMETHOPRIM
     Dosage: 960 MG, DAILY
     Route: 048
     Dates: start: 20070501
  18. DIGOXIN. [Concomitant]
     Active Substance: DIGOXIN
     Indication: CARDIAC DISORDER
     Dosage: 125 MG, DAILY
     Route: 048
     Dates: start: 20040101
  19. SIMVASTATIN. [Concomitant]
     Active Substance: SIMVASTATIN
     Indication: BLOOD CHOLESTEROL INCREASED
     Dosage: 40 MG, DAILY
     Route: 048
     Dates: end: 20070401

REACTIONS (3)
  - Bone disorder [Recovered/Resolved]
  - Pain [Recovered/Resolved]
  - Osteonecrosis [Recovered/Resolved]

NARRATIVE: CASE EVENT DATE: 20070619
